FAERS Safety Report 5688892-X (Version None)
Quarter: 2008Q1

REPORT INFORMATION
  Report Type: 
  Country: None (occurrence: None)
  Receive Date: 20080331
  Receipt Date: 20080319
  Transmission Date: 20080703
  Serious: Yes (Hospitalization, Other)
  Sender: FDA-Public Use
  Company Number: JP-BAYER-200810283BYL

PATIENT
  Age: 39 Year
  Sex: Female
  Weight: 48 kg

DRUGS (5)
  1. ASPIRIN [Suspect]
     Indication: CARDIAC FAILURE
     Dosage: TOTAL DAILY DOSE: 100 MG  UNIT DOSE: 100 MG
     Route: 048
     Dates: start: 20050611, end: 20050624
  2. LOXONIN [Suspect]
     Dosage: TOTAL DAILY DOSE: 60 MG
     Route: 048
     Dates: start: 20050615, end: 20050617
  3. ALDACTONE [Suspect]
     Indication: CARDIAC FAILURE
     Dosage: TOTAL DAILY DOSE: 25 MG
     Route: 048
     Dates: start: 20050611, end: 20050624
  4. SLOW-K [Suspect]
     Indication: HYPOKALAEMIA
     Dosage: UNIT DOSE: 300 MG
     Route: 048
     Dates: start: 20050614, end: 20050624
  5. PURSENNIDE [Suspect]
     Indication: CONSTIPATION
     Dosage: TOTAL DAILY DOSE: 12 MG
     Route: 048
     Dates: start: 20050614, end: 20070627

REACTIONS (1)
  - TOXIC EPIDERMAL NECROLYSIS [None]
